FAERS Safety Report 18899483 (Version 1)
Quarter: 2021Q1

REPORT INFORMATION
  Report Type: Spontaneous
  Country: CA (occurrence: CA)
  Receive Date: 20210216
  Receipt Date: 20210216
  Transmission Date: 20210420
  Serious: Yes (Death, Hospitalization)
  Sender: FDA-Public Use
  Company Number: CA-PFIZER INC-2020449271

PATIENT
  Age: 72 Year
  Sex: Female
  Weight: 73 kg

DRUGS (10)
  1. ZIRABEV [Suspect]
     Active Substance: BEVACIZUMAB-BVZR
     Dosage: 1000 MG EVERY 3 WEEKS
     Route: 042
     Dates: start: 20210105
  2. LOMUSTINE. [Concomitant]
     Active Substance: LOMUSTINE
     Dosage: UNK
  3. ZIRABEV [Suspect]
     Active Substance: BEVACIZUMAB-BVZR
     Dosage: 1000 MG EVERY 3 WEEKS
     Route: 042
     Dates: start: 20201124
  4. ZIRABEV [Suspect]
     Active Substance: BEVACIZUMAB-BVZR
     Dosage: 1000 MG EVERY 3 WEEKS
     Route: 042
     Dates: start: 20201215
  5. ZIRABEV [Suspect]
     Active Substance: BEVACIZUMAB-BVZR
     Dosage: 1000 MG EVERY 3 WEEKS
     Route: 042
     Dates: start: 20201124
  6. ZIRABEV [Suspect]
     Active Substance: BEVACIZUMAB-BVZR
     Dosage: 1000 MG EVERY 3 WEEKS
     Route: 042
     Dates: start: 20201124
  7. ZIRABEV [Suspect]
     Active Substance: BEVACIZUMAB-BVZR
     Dosage: 1000 MG EVERY 3 WEEKS
     Route: 042
     Dates: start: 20201215
  8. ZIRABEV [Suspect]
     Active Substance: BEVACIZUMAB-BVZR
     Indication: GLIOBLASTOMA
     Dosage: 1000 MG EVERY 3 WEEKS
     Route: 042
     Dates: start: 20201124
  9. ZIRABEV [Suspect]
     Active Substance: BEVACIZUMAB-BVZR
     Dosage: 1000 MG EVERY 3 WEEKS
     Route: 042
     Dates: start: 20210105, end: 20210105
  10. DEXAMETHASONE. [Concomitant]
     Active Substance: DEXAMETHASONE

REACTIONS (8)
  - Pulmonary thrombosis [Unknown]
  - Blood pressure increased [Unknown]
  - Death [Fatal]
  - Weight increased [Unknown]
  - Off label use [Unknown]
  - Peripheral swelling [Not Recovered/Not Resolved]
  - Product use issue [Unknown]
  - Pain in extremity [Not Recovered/Not Resolved]

NARRATIVE: CASE EVENT DATE: 20201124
